FAERS Safety Report 19065690 (Version 2)
Quarter: 2023Q2

REPORT INFORMATION
  Report Type: Spontaneous
  Country: US (occurrence: US)
  Receive Date: 20210327
  Receipt Date: 20230516
  Transmission Date: 20230721
  Serious: Yes (Life-Threatening, Hospitalization, Other)
  Sender: FDA-Public Use
  Company Number: US-MLMSERVICE-20210309-2772065-1

PATIENT
  Age: 41 Year
  Sex: Female

DRUGS (3)
  1. ONDANSETRON [Suspect]
     Active Substance: ONDANSETRON
     Indication: Nausea
     Route: 042
  2. KETOROLAK [Concomitant]
     Indication: Vomiting
     Route: 042
  3. ONDANSETRON [Suspect]
     Active Substance: ONDANSETRON
     Indication: Vomiting
     Route: 042

REACTIONS (7)
  - Hypomagnesaemia [Recovering/Resolving]
  - Cardiac arrest [Recovering/Resolving]
  - Hypokalaemia [Recovering/Resolving]
  - Ventricular extrasystoles [Recovering/Resolving]
  - Torsade de pointes [Recovering/Resolving]
  - Pancreatitis acute [Recovering/Resolving]
  - Electrocardiogram QT prolonged [Recovering/Resolving]
